FAERS Safety Report 4298983-6 (Version None)
Quarter: 2004Q1

REPORT INFORMATION
  Report Type: 
  Country: None (occurrence: None)
  Receive Date: 20040217
  Receipt Date: 20040211
  Transmission Date: 20041129
  Serious: Yes (Hospitalization, Other)
  Sender: FDA-Public Use
  Company Number: FRWYE574111FEB04

PATIENT
  Age: 43 Year
  Sex: Male

DRUGS (6)
  1. EFFEXOR [Suspect]
     Dosage: 75 MG 1X PER 1 DAY
     Route: 048
  2. ANTIVIRALS FOR SYSTEMIC USE (ANTIVIRALS FOR SYSTEMIC USE, , 0) [Suspect]
     Dosage: 400 MG
     Route: 048
     Dates: start: 20030618
  3. DEPAKINE (VALPROATE SODIUM, , 0) [Suspect]
     Dosage: 2.5 G
     Route: 048
  4. EPIVIR [Suspect]
     Dosage: 300 MG
     Route: 048
     Dates: start: 20010326
  5. LOXAPAC (LOXAPINE, CAPSULE, 0) [Suspect]
     Dosage: 25 MG 1X PER 1 DAY
     Route: 048
  6. ZIAGEN [Suspect]
     Dosage: 600 MG
     Route: 048
     Dates: start: 20010326

REACTIONS (3)
  - COGNITIVE DISORDER [None]
  - DISORIENTATION [None]
  - FALL [None]
